FAERS Safety Report 4339206-9 (Version None)
Quarter: 2004Q2

REPORT INFORMATION
  Report Type: 
  Country: None (occurrence: None)
  Receive Date: 20040412
  Receipt Date: 20040401
  Transmission Date: 20050107
  Serious: Yes (Other)
  Sender: FDA-Public Use
  Company Number: 2004022460

PATIENT
  Age: 30 Month
  Sex: Female
  Weight: 11.7935 kg

DRUGS (4)
  1. ZITHROMAX [Suspect]
     Indication: SINUSITIS
     Dosage: ORAL
     Route: 048
     Dates: start: 20040323, end: 20040324
  2. CETIRIZINE HCL [Concomitant]
  3. MOMETASONE FUROATE [Concomitant]
  4. MONTELUKAST (MONTELUKAST) [Concomitant]

REACTIONS (3)
  - DYSPNOEA [None]
  - FLUSHING [None]
  - RASH GENERALISED [None]
